FAERS Safety Report 5711899-0 (Version None)
Quarter: 2008Q2

REPORT INFORMATION
  Report Type: 
  Country: None (occurrence: None)
  Receive Date: 20080416
  Receipt Date: 20080331
  Transmission Date: 20081010
  Serious: Yes (Other)
  Sender: FDA-Public Use
  Company Number: 8031514

PATIENT
  Age: 55 Year
  Sex: Male

DRUGS (6)
  1. PREDNISOLONE [Suspect]
     Indication: DERMATITIS ATOPIC
     Dosage: PO
     Route: 048
     Dates: start: 20040101, end: 20050901
  2. PREDNISOLONE [Suspect]
     Indication: DERMATITIS ATOPIC
     Dosage: PO
     Route: 048
     Dates: start: 20050901, end: 20060301
  3. AZATHIOPRINE [Concomitant]
  4. CYANOCOBALAMIN [Concomitant]
  5. PYRIDOXINE HYDROCHLORIDE [Concomitant]
  6. THIAMINE [Concomitant]

REACTIONS (1)
  - BONE MARROW OEDEMA SYNDROME [None]
